FAERS Safety Report 6678685-9 (Version None)
Quarter: 2010Q2

REPORT INFORMATION
  Report Type: 
  Country: None (occurrence: None)
  Receive Date: 20100413
  Receipt Date: 20100407
  Transmission Date: 20101027
  Serious: Yes (Other)
  Sender: FDA-Public Use
  Company Number: JP-PFIZER INC-2010043846

PATIENT
  Age: 70 Year
  Sex: Male

DRUGS (2)
  1. CELECOX [Suspect]
     Indication: RHEUMATOID ARTHRITIS
     Dosage: 400MG DAILY
     Route: 048
  2. BUFFERIN [Concomitant]
     Dosage: UNK

REACTIONS (1)
  - BRAIN NATRIURETIC PEPTIDE INCREASED [None]
